FAERS Safety Report 4876182-4 (Version None)
Quarter: 2006Q1

REPORT INFORMATION
  Report Type: 
  Country: None (occurrence: None)
  Receive Date: 20060110
  Receipt Date: 20051115
  Transmission Date: 20060701
  Serious: Yes (Other)
  Sender: FDA-Public Use
  Company Number: 2005UW17481

PATIENT
  Age: 22953 Day
  Sex: Male
  Weight: 73.2 kg

DRUGS (3)
  1. CRESTOR [Suspect]
     Indication: BLOOD CHOLESTEROL INCREASED
     Route: 048
     Dates: start: 20050912, end: 20051110
  2. COREG [Concomitant]
     Indication: HYPERTENSION
     Route: 048
     Dates: start: 20050912
  3. ASPIRIN [Concomitant]

REACTIONS (1)
  - GLOBAL AMNESIA [None]
